FAERS Safety Report 25053615 (Version 2)
Quarter: 2025Q2

REPORT INFORMATION
  Report Type: Spontaneous
  Country: US (occurrence: US)
  Receive Date: 20250307
  Receipt Date: 20250510
  Transmission Date: 20250717
  Serious: No
  Sender: SANOFI AVENTIS
  Company Number: US-SA-2025SA064243

PATIENT
  Age: 43 Year
  Sex: Female

DRUGS (2)
  1. DUPIXENT [Suspect]
     Active Substance: DUPILUMAB
     Indication: Eczema
     Route: 058
     Dates: start: 202501, end: 202501
  2. DUPIXENT [Suspect]
     Active Substance: DUPILUMAB
     Indication: Dermatitis allergic
     Dosage: 300 MG, QOW
     Route: 058
     Dates: start: 2025

REACTIONS (16)
  - Skin swelling [Unknown]
  - Condition aggravated [Unknown]
  - Vomiting [Unknown]
  - Staphylococcal infection [Not Recovered/Not Resolved]
  - Insomnia [Unknown]
  - Condition aggravated [Unknown]
  - Headache [Unknown]
  - Vision blurred [Unknown]
  - Injection site bruising [Unknown]
  - Injection site pain [Unknown]
  - Eczema [Unknown]
  - Rash [Unknown]
  - Dry eye [Unknown]
  - Condition aggravated [Unknown]
  - Arthralgia [Unknown]
  - Condition aggravated [Unknown]

NARRATIVE: CASE EVENT DATE: 20250101
